FAERS Safety Report 6294563-1 (Version None)
Quarter: 2009Q3

REPORT INFORMATION
  Report Type: 
  Country: None (occurrence: None)
  Receive Date: 20090803
  Receipt Date: 20090723
  Transmission Date: 20100115
  Serious: Yes (Other)
  Sender: FDA-Public Use
  Company Number: ZA-PFIZER INC-2009245673

PATIENT
  Age: 48 Year

DRUGS (1)
  1. LOPID [Suspect]
     Indication: HYPERTRIGLYCERIDAEMIA
     Dosage: UNIT DOSE: UNK; FREQUENCY: UNK, UNK;
     Route: 048

REACTIONS (1)
  - DIPLOPIA [None]
